FAERS Safety Report 21733684 (Version 1)
Quarter: 2022Q4

REPORT INFORMATION
  Report Type: Spontaneous
  Country: US (occurrence: None)
  Receive Date: 20221215
  Receipt Date: 20221215
  Transmission Date: 20230113
  Serious: Yes (Death)
  Sender: FDA-Public Use
  Company Number: None

PATIENT
  Age: 67 Year
  Sex: Female
  Weight: 78.8 kg

DRUGS (1)
  1. YESCARTA [Suspect]
     Active Substance: AXICABTAGENE CILOLEUCEL
     Dosage: FREQUENCY : ONCE;?
     Route: 041

REACTIONS (4)
  - Neurotoxicity [None]
  - Encephalopathy [None]
  - Immune effector cell-associated neurotoxicity syndrome [None]
  - General physical health deterioration [None]

NARRATIVE: CASE EVENT DATE: 20221113
